FAERS Safety Report 21985090 (Version 1)
Quarter: 2023Q1

REPORT INFORMATION
  Report Type: Spontaneous
  Country: US (occurrence: None)
  Receive Date: 20230210
  Receipt Date: 20230210
  Transmission Date: 20230417
  Serious: Yes (unspecified)
  Sender: FDA-Public Use
  Company Number: None

PATIENT
  Age: 37 Year
  Sex: Male
  Weight: 105 kg

DRUGS (1)
  1. SAXENDA [Suspect]
     Active Substance: LIRAGLUTIDE

REACTIONS (5)
  - Neck pain [None]
  - Neck mass [None]
  - Ultrasound Doppler [None]
  - Vasculitis [None]
  - Tenderness [None]

NARRATIVE: CASE EVENT DATE: 20230201
